FAERS Safety Report 24712075 (Version 4)
Quarter: 2025Q1

REPORT INFORMATION
  Report Type: Spontaneous
  Country: JP (occurrence: JP)
  Receive Date: 20241209
  Receipt Date: 20250103
  Transmission Date: 20250409
  Serious: Yes (Death, Hospitalization, Other)
  Sender: PFIZER
  Company Number: JP-ONO-2024JP024672

PATIENT
  Age: 7 Decade
  Sex: Male

DRUGS (12)
  1. MEKTOVI [Suspect]
     Active Substance: BINIMETINIB
     Indication: Colon cancer
     Route: 048
  2. MEKTOVI [Suspect]
     Active Substance: BINIMETINIB
     Route: 048
  3. MEKTOVI [Suspect]
     Active Substance: BINIMETINIB
     Route: 048
  4. MEKTOVI [Suspect]
     Active Substance: BINIMETINIB
     Route: 048
  5. BRAFTOVI [Suspect]
     Active Substance: ENCORAFENIB
     Indication: Colon cancer
     Route: 048
  6. BRAFTOVI [Suspect]
     Active Substance: ENCORAFENIB
     Route: 048
  7. BRAFTOVI [Suspect]
     Active Substance: ENCORAFENIB
     Route: 048
  8. BRAFTOVI [Suspect]
     Active Substance: ENCORAFENIB
     Route: 048
  9. CETUXIMAB [Suspect]
     Active Substance: CETUXIMAB
     Indication: Colon cancer
     Route: 065
  10. CETUXIMAB [Suspect]
     Active Substance: CETUXIMAB
     Route: 065
  11. CETUXIMAB [Suspect]
     Active Substance: CETUXIMAB
     Route: 065
  12. CETUXIMAB [Suspect]
     Active Substance: CETUXIMAB
     Route: 065

REACTIONS (4)
  - Death [Fatal]
  - Renal impairment [Recovering/Resolving]
  - Fatigue [Unknown]
  - Decreased appetite [Unknown]
